FAERS Safety Report 4271865-1 (Version None)
Quarter: 2004Q1

REPORT INFORMATION
  Report Type: 
  Country: None (occurrence: None)
  Receive Date: 20040115
  Receipt Date: 20031024
  Transmission Date: 20041129
  Serious: Yes (Hospitalization)
  Sender: FDA-Public Use
  Company Number: US-ROCHE-350122

PATIENT
  Age: 44 Year
  Sex: Male

DRUGS (6)
  1. FUZEON [Suspect]
     Indication: HIV INFECTION
     Route: 058
     Dates: start: 20030815, end: 20031010
  2. FUZEON [Suspect]
     Route: 058
     Dates: start: 20031208
  3. VIREAD [Concomitant]
     Indication: HIV INFECTION
     Route: 065
  4. KALETRA [Concomitant]
     Indication: HIV INFECTION
     Route: 065
  5. DAPSONE [Concomitant]
     Indication: HIV INFECTION
     Route: 065
  6. WARFARIN SODIUM [Concomitant]
     Indication: HIV INFECTION
     Route: 065

REACTIONS (3)
  - ANXIETY [None]
  - MANIA [None]
  - PSYCHOTIC DISORDER [None]
